FAERS Safety Report 9425632 (Version 11)
Quarter: 2014Q4

REPORT INFORMATION
  Report Type: Report from Study
  Country: JP (occurrence: JP)
  Receive Date: 20130729
  Receipt Date: 20141027
  Transmission Date: 20150529
  Serious: Yes (Hospitalization, Other)
  Sender: FDA-Public Use
  Company Number: JP-VERTEX PHARMACEUTICALS INC-2013-008327

PATIENT
  Age: 66 Year
  Sex: Male
  Weight: 91 kg

DRUGS (19)
  1. TSUMURA SHAKUYAKUKANZORO EXTRACT GRANULES FOR ETHICAL USE [Suspect]
     Active Substance: HERBALS
     Indication: MUSCLE SPASMS
     Dosage: 2.5 G, QD, PRN
     Route: 048
     Dates: start: 20130418
  2. TSUMURA SHAKUYAKUKANZORO EXTRACT GRANULES FOR ETHICAL USE [Suspect]
     Active Substance: HERBALS
     Dosage: 2.5 G, QD
     Route: 048
     Dates: start: 20130925
  3. FEBURIC [Suspect]
     Active Substance: FEBUXOSTAT
     Indication: BLOOD URIC ACID INCREASED
     Dosage: 20 MG, QD
     Route: 048
     Dates: start: 20130709
  4. YODEL [Suspect]
     Active Substance: SENNA LEAF
     Indication: CONSTIPATION
     Dosage: 160 MG, QD
     Route: 048
  5. THYRADIN S [Suspect]
     Active Substance: LEVOTHYROXINE SODIUM
     Indication: THYROIDITIS CHRONIC
     Dosage: 100 ?G, QD
     Route: 048
     Dates: start: 20120903
  6. AMOBAN [Suspect]
     Active Substance: ZOPICLONE
     Indication: INSOMNIA
     Dosage: 3.75 MG, QD
     Route: 048
     Dates: start: 20130903
  7. KERATINAMIN [Suspect]
     Active Substance: UREA
     Indication: PRURITUS
     Dosage: PROPER DOSE, PRN
     Route: 062
     Dates: start: 20131015
  8. MP-424 [Suspect]
     Active Substance: TELAPREVIR
     Indication: CHRONIC HEPATITIS C
     Dosage: UNK
     Route: 048
     Dates: start: 20130702, end: 20130723
  9. LOXONIN [Suspect]
     Active Substance: LOXOPROFEN SODIUM
     Indication: PYREXIA
     Dosage: 60 MG, QD, PRN
     Route: 048
     Dates: start: 20130702
  10. TAKEPRON [Suspect]
     Active Substance: LANSOPRAZOLE
     Indication: GASTROOESOPHAGEAL REFLUX DISEASE
     Dosage: 30 MG, QD
     Route: 048
     Dates: start: 20120118
  11. RINDERON V [Suspect]
     Active Substance: BETAMETHASONE VALERATE
     Indication: UVEITIS
     Dosage: PROPER DOSE X 3, QD
     Route: 031
     Dates: start: 20130125
  12. ALLELOCK [Suspect]
     Active Substance: OLOPATADINE HYDROCHLORIDE
     Indication: RASH
     Dosage: 10 MG, QD
     Route: 048
     Dates: start: 20130708, end: 20130716
  13. ALLEGRA [Suspect]
     Active Substance: FEXOFENADINE HYDROCHLORIDE
     Indication: PRURITUS
     Dosage: 60 MG, QD
     Route: 048
     Dates: start: 20130829, end: 20131215
  14. ACUATIM [Suspect]
     Active Substance: NADIFLOXACIN
     Indication: ACNE
     Dosage: PROPER DOSE X BID
     Route: 061
     Dates: start: 20130722, end: 20130804
  15. DERMOVATE [Concomitant]
     Active Substance: CLOBETASOL
     Indication: PRODUCT USED FOR UNKNOWN INDICATION
     Dosage: UNK, BID
     Route: 061
     Dates: start: 20130708, end: 20130722
  16. WHITE PETROLATUM [Concomitant]
     Active Substance: PETROLATUM
     Indication: PRODUCT USED FOR UNKNOWN INDICATION
     Dosage: PROPER DOSE X 2
     Route: 061
     Dates: start: 20130708, end: 20130722
  17. REBETOL [Suspect]
     Active Substance: RIBAVIRIN
     Indication: CHRONIC HEPATITIS C
     Dosage: 600 MG, QD
     Route: 048
     Dates: start: 20130702
  18. FERON [Suspect]
     Active Substance: INTERFERON BETA
     Indication: CHRONIC HEPATITIS C
     Dosage: 6 MIU, QD
     Route: 041
     Dates: start: 20130702
  19. NORVASC [Suspect]
     Active Substance: AMLODIPINE BESYLATE
     Indication: HYPERTENSION
     Dosage: 2.5 MG, QD
     Route: 048

REACTIONS (3)
  - Cataract [Recovered/Resolved]
  - Optic nerve disorder [Recovered/Resolved]
  - Blood bilirubin increased [Recovered/Resolved]

NARRATIVE: CASE EVENT DATE: 20130709
